FAERS Safety Report 7117336-6 (Version None)
Quarter: 2010Q4

REPORT INFORMATION
  Report Type: 
  Country: None (occurrence: None)
  Receive Date: 20101122
  Receipt Date: 20101111
  Transmission Date: 20110411
  Serious: Yes (Death)
  Sender: FDA-Public Use
  Company Number: DE-TEVA-255254GER

PATIENT
  Age: 84 Year
  Sex: Male
  Weight: 110 kg

DRUGS (2)
  1. AMOXI-CLAVULANICO (AMOXICILLIN-RATIOPHARM COMP.) [Suspect]
     Dosage: AMOXICILLIN/CLAVULANIC ACID 875/125 MG
     Route: 048
  2. VALORON RETARD N [Concomitant]
     Dosage: TILIDIN/NALOXONHYDROCHLORIDE 50/4 MG

REACTIONS (2)
  - AGGRESSION [None]
  - DEPRESSION [None]
